FAERS Safety Report 16642958 (Version 2)
Quarter: 2019Q3

REPORT INFORMATION
  Report Type: Spontaneous
  Country: US (occurrence: US)
  Receive Date: 20190729
  Receipt Date: 20190910
  Transmission Date: 20191004
  Serious: Yes (Other)
  Sender: FDA-Public Use
  Company Number: US-PFIZER INC-2019323294

PATIENT
  Age: 77 Year
  Sex: Female
  Weight: 90.5 kg

DRUGS (4)
  1. CELEBREX [Suspect]
     Active Substance: CELECOXIB
     Indication: LIMB DISCOMFORT
  2. CELEBREX [Suspect]
     Active Substance: CELECOXIB
     Indication: BACK DISORDER
  3. TYLENOL [Concomitant]
     Active Substance: ACETAMINOPHEN
     Dosage: UNK UNK, DAILY
  4. CELEBREX [Suspect]
     Active Substance: CELECOXIB
     Indication: MUSCLE DISORDER
     Dosage: 200 MG, 1X/DAY
     Route: 048

REACTIONS (4)
  - Head injury [Unknown]
  - Fall [Unknown]
  - Mobility decreased [Unknown]
  - Back injury [Unknown]

NARRATIVE: CASE EVENT DATE: 20190718
